FAERS Safety Report 4618172-2 (Version None)
Quarter: 2005Q2

REPORT INFORMATION
  Report Type: 
  Country: None (occurrence: None)
  Receive Date: 20050316
  Receipt Date: 20041209
  Transmission Date: 20051028
  Serious: Yes (Other)
  Sender: FDA-Public Use
  Company Number: S04-USA-07763-01

PATIENT
  Age: 56 Year
  Sex: Female

DRUGS (3)
  1. LEXAPRO [Suspect]
     Indication: DEPRESSION
     Dosage: 10 MG ONCE PO
     Route: 048
     Dates: start: 20041208, end: 20041208
  2. AN UNKNOWN ANTI-HYPERTENSIVE (NOS) [Concomitant]
  3. PRILOSEC [Concomitant]

REACTIONS (1)
  - MANIA [None]
